FAERS Safety Report 4343024-5 (Version None)
Quarter: 2004Q2

REPORT INFORMATION
  Report Type: 
  Country: None (occurrence: None)
  Receive Date: 20040416
  Receipt Date: 20040331
  Transmission Date: 20050107
  Serious: Yes (Hospitalization)
  Sender: FDA-Public Use
  Company Number: 2004-0006887

PATIENT
  Age: 37 Year
  Sex: Male

DRUGS (6)
  1. VIREAD [Suspect]
     Indication: HIV INFECTION
     Dosage: 1 IN 1 D
     Dates: start: 20030920, end: 20040216
  2. REYATAZ [Suspect]
     Indication: HIV INFECTION
     Dates: start: 20030920, end: 20040216
  3. BACTRIM [Concomitant]
  4. VIDEX [Concomitant]
  5. BEZAMIDIN (BEZAFIBRATE) [Concomitant]
  6. HEVIRAN (ACICLOVIR SODIUM) [Concomitant]

REACTIONS (6)
  - ANOREXIA [None]
  - ASTHENIA [None]
  - METABOLIC ACIDOSIS [None]
  - RENAL FAILURE [None]
  - VOMITING [None]
  - WEIGHT DECREASED [None]
